FAERS Safety Report 8422262-6 (Version None)
Quarter: 2012Q2

REPORT INFORMATION
  Report Type: 
  Country: None (occurrence: None)
  Receive Date: 20120323
  Receipt Date: 20110803
  Transmission Date: 20120825
  Serious: Yes (Other)
  Sender: FDA-Public Use
  Company Number: 163-21880-11080735

PATIENT
  Age: 74 Year
  Sex: Female
  Weight: 58.514 kg

DRUGS (1)
  1. LENALIDOMIDE [Suspect]
     Indication: MULTIPLE MYELOMA
     Dosage: 5 MG, QD, PO
     Route: 048
     Dates: start: 20110101, end: 20110701

REACTIONS (2)
  - NEUTROPENIA [None]
  - RENAL IMPAIRMENT [None]
